FAERS Safety Report 14473324 (Version 1)
Quarter: 2018Q1

REPORT INFORMATION
  Report Type: Report from Study
  Country: BR (occurrence: BR)
  Receive Date: 20180201
  Receipt Date: 20180201
  Transmission Date: 20180509
  Serious: Yes (Other)
  Sender: FDA-Public Use
  Company Number: BR-ROCHE-2062550

PATIENT
  Sex: Female
  Weight: 80 kg

DRUGS (3)
  1. XOLAIR [Suspect]
     Active Substance: OMALIZUMAB
     Indication: ASTHMA
     Dosage: 3 AMPOULES EVERY 15 DAYS
     Route: 058
  2. XARELTO [Concomitant]
     Active Substance: RIVAROXABAN
     Indication: CARDIOVASCULAR DISORDER
     Dosage: 1 DF, QD (FOR 4 MONTHS)
     Route: 048
  3. FRONTAL [Concomitant]
     Active Substance: ALPRAZOLAM
     Indication: ANXIETY
     Dosage: 1 DF, QD (FOR 4 MONTHS)
     Route: 048

REACTIONS (12)
  - Arrhythmia [Recovering/Resolving]
  - Drug administration error [Recovered/Resolved]
  - Injection site haemorrhage [Unknown]
  - Cataract [Not Recovered/Not Resolved]
  - Sciatica [Not Recovered/Not Resolved]
  - Inappropriate schedule of drug administration [Unknown]
  - Injection site bruising [Recovered/Resolved]
  - Lymphangiopathy [Not Recovered/Not Resolved]
  - Abdominal discomfort [Unknown]
  - Abdominal hernia [Recovered/Resolved]
  - Injection site discolouration [Unknown]
  - Injury [Unknown]

NARRATIVE: CASE EVENT DATE: 2017
